FAERS Safety Report 7689212-1 (Version None)
Quarter: 2011Q3

REPORT INFORMATION
  Report Type: 
  Country: None (occurrence: None)
  Receive Date: 20110811
  Receipt Date: 20110725
  Transmission Date: 20111222
  Serious: Yes (Other)
  Sender: FDA-Public Use
  Company Number: 2011AP001532

PATIENT
  Age: 56 Year
  Sex: Female

DRUGS (2)
  1. LITHIUM CARBONATE [Suspect]
     Indication: BIPOLAR DISORDER
     Dosage: 300 MG; AM; 450 MG; HS;
  2. LITHIUM CARBONATE [Suspect]
     Indication: BIPOLAR DISORDER
     Dosage: 300 MG; AM; 450 MG; HS;

REACTIONS (2)
  - CHRONOTROPIC INCOMPETENCE [None]
  - ATRIOVENTRICULAR BLOCK SECOND DEGREE [None]
